FAERS Safety Report 7715450-5 (Version None)
Quarter: 2011Q3

REPORT INFORMATION
  Report Type: 
  Country: None (occurrence: None)
  Receive Date: 20110810
  Receipt Date: 20110627
  Transmission Date: 20111222
  Serious: Yes (Other)
  Sender: FDA-Public Use
  Company Number: 1000021828

PATIENT
  Age: 64 Year
  Sex: Male

DRUGS (7)
  1. SAVELLA [Suspect]
     Indication: DIABETIC NEUROPATHY
     Dosage: 12.5 MG (12.5 MG, 1 IN 1 D), ORAL 12.5 MG BID (12.5 MG, 2 IN 1 D), ORAL, 25 MG BID (25 MG, 2 IN 1 D)
     Route: 048
     Dates: start: 20110501, end: 20110501
  2. SAVELLA [Suspect]
     Indication: DIABETIC NEUROPATHY
     Dosage: 12.5 MG (12.5 MG, 1 IN 1 D), ORAL 12.5 MG BID (12.5 MG, 2 IN 1 D), ORAL, 25 MG BID (25 MG, 2 IN 1 D)
     Route: 048
     Dates: start: 20110501, end: 20110501
  3. SAVELLA [Suspect]
     Indication: DIABETIC NEUROPATHY
     Dosage: 12.5 MG (12.5 MG, 1 IN 1 D), ORAL 12.5 MG BID (12.5 MG, 2 IN 1 D), ORAL, 25 MG BID (25 MG, 2 IN 1 D)
     Route: 048
     Dates: start: 20110501, end: 20110501
  4. SAVELLA [Suspect]
     Indication: DIABETIC NEUROPATHY
     Dosage: 50 MG BID (50 MG, 2 IN 1 D), ORAL
     Route: 048
     Dates: start: 20110501, end: 20110601
  5. LOPRESSOR (METOPROLOL TARTRATE) (METOPROLOL TARTRATE) [Concomitant]
  6. LYRICA [Concomitant]
  7. SAVELLA [Suspect]
     Indication: DIABETIC NEUROPATHY
     Dosage: 12.5 MG (12.5 MG, 1 IN 1 D), ORAL
     Route: 048
     Dates: start: 20110624

REACTIONS (7)
  - PAROSMIA [None]
  - DECREASED APPETITE [None]
  - MORBID THOUGHTS [None]
  - DEPRESSION [None]
  - INSOMNIA [None]
  - WEIGHT DECREASED [None]
  - DYSGEUSIA [None]
